FAERS Safety Report 8058237 (Version 3)
Quarter: 2013Q4

REPORT INFORMATION
  Report Type: Spontaneous
  Country: US (occurrence: US)
  Receive Date: 20110728
  Receipt Date: 20131204
  Transmission Date: 20140711
  Serious: Yes (Life-Threatening, Hospitalization)
  Sender: FDA-Public Use
  Company Number: US-BAYER-2011-065236

PATIENT
  Age: 28 Year
  Sex: Female

DRUGS (13)
  1. YAZ [Suspect]
     Dosage: UNK
     Dates: start: 20081014, end: 20091006
  2. YASMIN [Suspect]
     Dosage: UNK
     Dates: start: 20091006, end: 200912
  3. OCELLA [Suspect]
  4. GIANVI [Suspect]
  5. ASPIRIN [Concomitant]
     Dosage: 325 MG, UNK
  6. DILTIAZEM [Concomitant]
     Dosage: 60 MG, UNK
  7. PRILOSEC [Concomitant]
     Dosage: 20 MG, UNK
  8. LORATADINE [Concomitant]
     Dosage: 10 MG, UNK
  9. IBUPROFEN [Concomitant]
     Dosage: 800 MG, UNK
  10. XOPENEX [Concomitant]
  11. SPIRONOLACTONE [Concomitant]
     Dosage: 50 MG, UNK
  12. ATENOLOL [Concomitant]
     Dosage: 50 MG, UNK
  13. CIPROFLOXACIN [Concomitant]
     Dosage: 500 MG, UNK

REACTIONS (8)
  - Cholecystectomy [None]
  - Biliary dyskinesia [None]
  - Cholecystitis chronic [None]
  - Injury [None]
  - Pain [None]
  - Anxiety [None]
  - Anhedonia [None]
  - Fear of disease [None]
